FAERS Safety Report 6470819-4 (Version None)
Quarter: 2009Q4

REPORT INFORMATION
  Report Type: 
  Country: None (occurrence: None)
  Receive Date: 20091203
  Receipt Date: 20091126
  Transmission Date: 20100525
  Serious: Yes (Hospitalization, Other)
  Sender: FDA-Public Use
  Company Number: BR-ABBOTT-08P-020-0486697-00

PATIENT
  Sex: Female
  Weight: 58 kg

DRUGS (11)
  1. HUMIRA [Suspect]
     Indication: RHEUMATOID ARTHRITIS
     Dosage: 1 APPLICATION EVERY 14 DAYS
     Route: 058
     Dates: start: 20061101, end: 20081001
  2. HUMIRA [Suspect]
     Route: 058
  3. METHOTREXATE [Concomitant]
     Indication: RHEUMATOID ARTHRITIS
  4. AMITRIPTYLINE [Concomitant]
     Indication: DRUG USE FOR UNKNOWN INDICATION
  5. SIMVASTATIN [Concomitant]
     Indication: DRUG USE FOR UNKNOWN INDICATION
  6. ACYCLOVIR [Concomitant]
     Indication: HERPES VIRUS INFECTION
  7. FOLIC ACID [Concomitant]
     Indication: VITAMIN SUPPLEMENTATION
     Route: 048
  8. RAMIPRIL [Concomitant]
     Indication: HYPERTENSION
     Route: 048
  9. FLUOXETINE [Concomitant]
     Indication: DEPRESSION
     Route: 048
  10. SIMVASTIN [Concomitant]
     Indication: BLOOD CHOLESTEROL
     Route: 048
  11. CALCIUM + VITAMIN D [Concomitant]
     Indication: OSTEOPOROSIS
     Dosage: 1000MG CALCIUM
     Route: 048

REACTIONS (4)
  - INFLUENZA [None]
  - INJECTION SITE PAIN [None]
  - INTERVERTEBRAL DISC DISPLACEMENT [None]
  - PAIN [None]
